FAERS Safety Report 20327774 (Version 1)
Quarter: 2022Q1

REPORT INFORMATION
  Report Type: Spontaneous
  Country: US (occurrence: None)
  Receive Date: 20220111
  Receipt Date: 20220111
  Transmission Date: 20220423
  Serious: Yes (Death)
  Sender: FDA-Public Use
  Company Number: None

PATIENT
  Age: 42 Year
  Sex: Female
  Weight: 51 kg

DRUGS (15)
  1. PULMOZYME [Suspect]
     Active Substance: DORNASE ALFA
     Indication: Cystic fibrosis
     Dosage: FREQUENCY : DAILY;?OTHER ROUTE : NEBULIZE;?
     Route: 050
     Dates: start: 20210401, end: 20211229
  2. VITAMINS [Concomitant]
     Active Substance: VITAMINS
  3. calcium tablets [Concomitant]
  4. BUMETANIDE [Concomitant]
     Active Substance: BUMETANIDE
  5. creon 36000 unit capsule [Concomitant]
  6. famotidine 20mg tablet [Concomitant]
  7. GABAPENTIN [Concomitant]
     Active Substance: GABAPENTIN
  8. mirtazapine 15mg tablet [Concomitant]
  9. pantoprazole 40mg tablet [Concomitant]
  10. spironolactone 50mg tablet [Concomitant]
  11. sucralfate 1gram tablet [Concomitant]
  12. IRON [Concomitant]
     Active Substance: IRON
  13. VITAMIN B12 [Concomitant]
     Active Substance: CYANOCOBALAMIN
  14. vitamin B6 tablet [Concomitant]
  15. vitamin D softgels [Concomitant]

REACTIONS (2)
  - Pneumonia [None]
  - Fluid retention [None]

NARRATIVE: CASE EVENT DATE: 20211229
